FAERS Safety Report 23810846 (Version 1)
Quarter: 2024Q2

REPORT INFORMATION
  Report Type: Report from Study
  Country: US (occurrence: None)
  Receive Date: 20240502
  Receipt Date: 20240502
  Transmission Date: 20240716
  Serious: Yes (Other)
  Sender: FDA-Public Use
  Company Number: 2024A099062

PATIENT
  Sex: Female

DRUGS (1)
  1. CALQUENCE [Suspect]
     Active Substance: ACALABRUTINIB
     Indication: Chronic lymphocytic leukaemia
     Route: 048
     Dates: start: 20231104

REACTIONS (5)
  - Spinal fracture [Unknown]
  - Chest pain [Unknown]
  - Crohn^s disease [Unknown]
  - Back disorder [Unknown]
  - Impaired healing [Unknown]
